FAERS Safety Report 10926536 (Version 1)
Quarter: 2015Q1

REPORT INFORMATION
  Report Type: Spontaneous
  Country: US (occurrence: US)
  Receive Date: 20150318
  Receipt Date: 20150318
  Transmission Date: 20150721
  Serious: Yes (Death, Other)
  Sender: FDA-Public Use
  Company Number: PHHY2015US028898

PATIENT

DRUGS (1)
  1. TACROLIMUS. [Suspect]
     Active Substance: TACROLIMUS
     Indication: PRODUCT USED FOR UNKNOWN INDICATION
     Route: 065

REACTIONS (7)
  - Complications of transplanted lung [Fatal]
  - Respiratory disorder [Fatal]
  - Renal failure [Fatal]
  - Hypoxia [Fatal]
  - Toxicity to various agents [Unknown]
  - Drug level increased [Unknown]
  - Blood creatinine increased [Fatal]
